FAERS Safety Report 9456392 (Version 2)
Quarter: 2013Q3

REPORT INFORMATION
  Report Type: Spontaneous
  Country: US (occurrence: US)
  Receive Date: 20130813
  Receipt Date: 20130909
  Transmission Date: 20140515
  Serious: No
  Sender: FDA-Public Use
  Company Number: US-B.I. PHARMACEUTICALS,INC./RIDGEFIELD-2013-BI-23686BP

PATIENT
  Age: 65 Year
  Sex: Male
  Weight: 89 kg

DRUGS (6)
  1. SPIRIVA [Suspect]
     Indication: CHRONIC OBSTRUCTIVE PULMONARY DISEASE
     Dosage: 18 MCG
     Route: 055
     Dates: start: 20130604
  2. SPIRIVA [Suspect]
     Indication: CHRONIC OBSTRUCTIVE PULMONARY DISEASE
     Dates: start: 20130613, end: 20130722
  3. FLUTICASONE [Concomitant]
     Indication: NASAL CONGESTION
     Route: 045
     Dates: start: 20130604
  4. ALBUTEROL [Concomitant]
     Indication: CHRONIC OBSTRUCTIVE PULMONARY DISEASE
     Dosage: STRENGTH: ONE AMPULE; DAILY DOSE: THREE AMPULES
     Route: 055
     Dates: start: 20130604
  5. SYMBICORT [Concomitant]
     Indication: CHRONIC OBSTRUCTIVE PULMONARY DISEASE
     Dosage: 6 PUF
     Route: 055
     Dates: start: 20130604
  6. VENTOLIN [Concomitant]
     Indication: INHALATION THERAPY
     Route: 055
     Dates: start: 20130604

REACTIONS (3)
  - Chest pain [Recovered/Resolved]
  - Product quality issue [Unknown]
  - Product quality control issue [Unknown]
